FAERS Safety Report 4704869-2 (Version None)
Quarter: 2005Q2

REPORT INFORMATION
  Report Type: 
  Country: None (occurrence: None)
  Receive Date: 20050630
  Receipt Date: 20050630
  Transmission Date: 20051028
  Serious: Yes (Hospitalization)
  Sender: FDA-Public Use
  Company Number: None

PATIENT
  Age: 70 Year
  Sex: Male
  Weight: 82 kg

DRUGS (17)
  1. DIGOXIN [Suspect]
     Indication: CARDIAC FAILURE CONGESTIVE
     Dosage: 0.25 MG   QD  ORAL
     Route: 048
  2. CARVEDILOL [Suspect]
     Indication: CARDIAC FAILURE CONGESTIVE
     Dosage: 12.5 MG   BID   ORAL
     Route: 048
  3. ALBUTEROL [Concomitant]
  4. CALCIUM GLUCONATE [Concomitant]
  5. NTG SL [Concomitant]
  6. LISINOPRIL [Concomitant]
  7. TERAZOSIN HCL [Concomitant]
  8. VENLAFAXINE HCL [Concomitant]
  9. VIT D [Concomitant]
  10. CARVEDILOL [Concomitant]
  11. DIGOXIN [Concomitant]
  12. MEXILETINE HCL [Concomitant]
  13. QUINIDINE HCL [Concomitant]
  14. FUROSEMIDE [Concomitant]
  15. OMEPRAZOLE [Concomitant]
  16. SPIRONOLACTONE [Concomitant]
  17. MULTI-VITAMIN [Concomitant]

REACTIONS (5)
  - DECREASED APPETITE [None]
  - DEHYDRATION [None]
  - DIZZINESS [None]
  - HEART RATE DECREASED [None]
  - HYPOTENSION [None]
